FAERS Safety Report 9632359 (Version 1)
Quarter: 2013Q4

REPORT INFORMATION
  Report Type: Spontaneous
  Country: US (occurrence: None)
  Receive Date: 20131018
  Receipt Date: 20131018
  Transmission Date: 20140711
  Serious: No
  Sender: FDA-Public Use
  Company Number: None

PATIENT
  Sex: Female

DRUGS (1)
  1. TECFIDERA 240MG BIOGEN [Suspect]
     Route: 048
     Dates: start: 20130920

REACTIONS (2)
  - Abdominal pain upper [None]
  - Flushing [None]
